FAERS Safety Report 10615737 (Version 3)
Quarter: 2025Q4

REPORT INFORMATION
  Report Type: Spontaneous
  Country: EU (occurrence: EU)
  Receive Date: 20141201
  Receipt Date: 20251229
  Transmission Date: 20260117
  Serious: Yes (Other)
  Sender: SANOFI AVENTIS
  Company Number: EU-SA-2014SA159489

PATIENT
  Sex: Female

DRUGS (2)
  1. ARAVA [Suspect]
     Active Substance: LEFLUNOMIDE
     Indication: Rheumatic disorder
     Dosage: UNK
     Route: 001
     Dates: start: 2005, end: 200707
  2. ETANERCEPT [Suspect]
     Active Substance: ETANERCEPT
     Indication: Rheumatic disorder
     Dosage: UNK
     Route: 065
     Dates: start: 2005

REACTIONS (2)
  - Abortion spontaneous [Unknown]
  - Exposure via partner [Unknown]

NARRATIVE: CASE EVENT DATE: 20140101
